FAERS Safety Report 25997121 (Version 1)
Quarter: 2025Q4

REPORT INFORMATION
  Report Type: Other
  Country: US (occurrence: US)
  Receive Date: 20251104
  Receipt Date: 20251104
  Transmission Date: 20260118
  Serious: Yes (Hospitalization)
  Sender: HLS THERAPEUTICS
  Company Number: US-HLS-202500370

PATIENT
  Age: 48 Year
  Sex: Male

DRUGS (4)
  1. CLOZAPINE [Suspect]
     Active Substance: CLOZAPINE
     Indication: Product used for unknown indication
     Route: 065
  2. ZUCLOPENTHIXOL [Concomitant]
     Active Substance: ZUCLOPENTHIXOL
     Indication: Product used for unknown indication
     Route: 065
  3. DIAZEPAM [Concomitant]
     Active Substance: DIAZEPAM
     Indication: Product used for unknown indication
     Route: 065
  4. FLUVOXAMINE [Suspect]
     Active Substance: FLUVOXAMINE
     Indication: Product used for unknown indication
     Dosage: INITIAL DD OF 25 MG WAS ESTABLISHED ON DAY 7, FOR THE FOLLOWING 7 DAYS, THE DD OF FLV WAS?INCREASED
     Route: 065

REACTIONS (5)
  - Mutism [Unknown]
  - Salivary hypersecretion [Unknown]
  - Bradyphrenia [Recovering/Resolving]
  - Psychomotor retardation [Recovering/Resolving]
  - Psychotic disorder [Unknown]
